FAERS Safety Report 6891619-7 (Version None)
Quarter: 2010Q3

REPORT INFORMATION
  Report Type: 
  Country: None (occurrence: None)
  Receive Date: 20100731
  Receipt Date: 20070913
  Transmission Date: 20110219
  Serious: No
  Sender: FDA-Public Use
  Company Number: US-PFIZER INC-2007076786

PATIENT
  Sex: Male
  Weight: 89.81 kg

DRUGS (12)
  1. FLAGYL [Suspect]
     Indication: URINARY TRACT INFECTION BACTERIAL
  2. COLACE [Concomitant]
  3. ACETYLSALICYLIC ACID SRT [Concomitant]
  4. POTASSIUM [Concomitant]
  5. FUROSEMIDE [Concomitant]
  6. COREG [Concomitant]
  7. METFORMIN HCL [Concomitant]
  8. DIGOXIN [Concomitant]
  9. AMBIEN [Concomitant]
  10. ALTACE [Concomitant]
  11. MIRAPEX [Concomitant]
  12. ACIDOPHILUS [Concomitant]

REACTIONS (1)
  - DRUG INEFFECTIVE [None]
